FAERS Safety Report 8200740-2 (Version None)
Quarter: 2012Q1

REPORT INFORMATION
  Report Type: 
  Country: None (occurrence: None)
  Receive Date: 20120312
  Receipt Date: 20120302
  Transmission Date: 20120608
  Serious: Yes (Hospitalization)
  Sender: FDA-Public Use
  Company Number: FR-JNJFOC-20120302691

PATIENT
  Sex: Male
  Weight: 59.4 kg

DRUGS (4)
  1. REMICADE [Suspect]
     Indication: CROHN'S DISEASE
     Route: 042
     Dates: start: 20030213
  2. HUMIRA [Concomitant]
     Indication: CROHN'S DISEASE
     Dates: start: 20091026
  3. PREDNISONE [Concomitant]
     Indication: CROHN'S DISEASE
  4. ALL OTHER THERAPEUTIC PRODUCTS [Concomitant]
     Route: 048

REACTIONS (1)
  - ANAL ABSCESS [None]
